FAERS Safety Report 24014737 (Version 1)
Quarter: 2024Q2

REPORT INFORMATION
  Report Type: Spontaneous
  Country: US (occurrence: None)
  Receive Date: 20240625
  Receipt Date: 20240625
  Transmission Date: 20240716
  Serious: Yes (Disabling)
  Sender: FDA-Public Use
  Company Number: None

PATIENT
  Age: 43 Year
  Sex: Female
  Weight: 81 kg

DRUGS (4)
  1. PAINLESS TATTOO NUMBING CREAM [Suspect]
     Active Substance: LIDOCAINE HYDROCHLORIDE
     Indication: Product used for unknown indication
     Dosage: OTHER FREQUENCY : USE CREAM PRIOR?
     Route: 061
     Dates: start: 20240420, end: 20240420
  2. PAINLESS TATTOO NUMBING [Suspect]
     Active Substance: LIDOCAINE HYDROCHLORIDE
  3. ADDERALL [Concomitant]
     Active Substance: AMPHETAMINE ASPARTATE\AMPHETAMINE SULFATE\DEXTROAMPHETAMINE SACCHARATE\DEXTROAMPHETAMINE SULFATE
  4. VITAMINS [Concomitant]
     Active Substance: VITAMINS

REACTIONS (5)
  - Skin infection [None]
  - Second degree chemical burn of skin [None]
  - Third degree chemical burn of skin [None]
  - Polyneuropathy [None]
  - Product formulation issue [None]

NARRATIVE: CASE EVENT DATE: 20240420
